FAERS Safety Report 16654956 (Version 1)
Quarter: 2019Q3

REPORT INFORMATION
  Report Type: Spontaneous
  Country: SE (occurrence: SE)
  Receive Date: 20190801
  Receipt Date: 20190801
  Transmission Date: 20191004
  Serious: Yes (Other)
  Sender: FDA-Public Use
  Company Number: SE-ASTRAZENECA-2019SF05906

PATIENT
  Age: 77 Year
  Sex: Male

DRUGS (11)
  1. DORZOLAMID/TIMOLOL [Concomitant]
     Active Substance: DORZOLAMIDE HYDROCHLORIDE\TIMOLOL MALEATE
     Dates: start: 20190708
  2. VISCOTEARS [Concomitant]
     Active Substance: CARBOMER
     Dates: start: 20190708
  3. ENALAPRIL [Concomitant]
     Active Substance: ENALAPRIL
     Dates: start: 20190705
  4. AMLODIPIN [Concomitant]
     Active Substance: AMLODIPINE BESYLATE
     Dates: start: 20190705
  5. SPIRONOLACTONE. [Concomitant]
     Active Substance: SPIRONOLACTONE
     Dosage: 25.0 MG
     Dates: start: 20190531
  6. FORXIGA [Suspect]
     Active Substance: DAPAGLIFLOZIN
     Indication: TYPE 2 DIABETES MELLITUS
     Route: 048
     Dates: start: 20190530
  7. ATORVASTATIN [Concomitant]
     Active Substance: ATORVASTATIN
     Dates: start: 20190705
  8. METFORMIN [Concomitant]
     Active Substance: METFORMIN HYDROCHLORIDE
     Dates: start: 20190710
  9. METOPROLOL. [Concomitant]
     Active Substance: METOPROLOL
     Dates: start: 20190603
  10. BETOLVEX [Concomitant]
     Active Substance: CYANOCOBALAMIN
     Dates: start: 20190703
  11. OCULENTUM SIMPLEX APL [Concomitant]
     Dates: start: 20190708, end: 20190714

REACTIONS (1)
  - Fungal balanitis [Unknown]

NARRATIVE: CASE EVENT DATE: 20190706
